FAERS Safety Report 12441243 (Version 3)
Quarter: 2016Q3

REPORT INFORMATION
  Report Type: Spontaneous
  Country: IT (occurrence: IT)
  Receive Date: 20160607
  Receipt Date: 20160915
  Transmission Date: 20161109
  Serious: Yes (Other)
  Sender: FDA-Public Use
  Company Number: IT-ACCORD-041105

PATIENT
  Age: 59 Year
  Sex: Male
  Weight: 91 kg

DRUGS (8)
  1. LYRICA [Concomitant]
     Active Substance: PREGABALIN
     Dosage: STRENGTH:75 MG
  2. CISPLATIN. [Suspect]
     Active Substance: CISPLATIN
     Indication: LUNG NEOPLASM MALIGNANT
     Dosage: THE PATIENT UNDERWENT THE FIRST CYCLE DAY 1 CDDP/VNR
     Route: 042
     Dates: start: 20160316
  3. EUTIROX [Concomitant]
     Active Substance: LEVOTHYROXINE SODIUM
     Dosage: STRENGTH: 50 MG
  4. VINORELBINE [Suspect]
     Active Substance: VINORELBINE\VINORELBINE TARTRATE
     Indication: LUNG NEOPLASM MALIGNANT
     Dosage: THE PATIENT UNDERWENT THE FIRST CYCLE DAY 1 CDDP/VNR
     Route: 042
     Dates: start: 20160316
  5. ENALAPRIL [Concomitant]
     Active Substance: ENALAPRIL
  6. METFORMIN [Concomitant]
     Active Substance: METFORMIN HYDROCHLORIDE
  7. OXYCONTIN [Concomitant]
     Active Substance: OXYCODONE HYDROCHLORIDE
     Dosage: STRENGTH:5 MG
  8. VERSATIS [Concomitant]
     Active Substance: LIDOCAINE
     Dosage: STRENGTH: 5%

REACTIONS (6)
  - Thrombocytopenia [Recovering/Resolving]
  - Thermal burn [Unknown]
  - Vertigo [Recovering/Resolving]
  - Nausea [Recovering/Resolving]
  - Hyperchlorhydria [Recovering/Resolving]
  - Hypoacusis [Recovering/Resolving]

NARRATIVE: CASE EVENT DATE: 20160323
